FAERS Safety Report 4336010-2 (Version None)
Quarter: 2004Q2

REPORT INFORMATION
  Report Type: 
  Country: None (occurrence: None)
  Receive Date: 20040406
  Receipt Date: 20040402
  Transmission Date: 20050107
  Serious: Yes (Hospitalization)
  Sender: FDA-Public Use
  Company Number: TOR 2004-0013

PATIENT
  Age: 75 Year
  Sex: Female

DRUGS (3)
  1. FARESTON [Suspect]
     Indication: BREAST CANCER
     Dosage: 40 MG ORAL
     Route: 048
     Dates: start: 20020131, end: 20040131
  2. INCADRONATE DISODIUM [Suspect]
     Indication: BREAST CANCER
     Dosage: 10 MG INTRAVENOUS
     Route: 042
     Dates: start: 20030408, end: 20040107
  3. FUROSEMIDE [Concomitant]

REACTIONS (6)
  - CONDITION AGGRAVATED [None]
  - DIALYSIS [None]
  - DYSPNOEA [None]
  - NEPHROTIC SYNDROME [None]
  - OEDEMA PERIPHERAL [None]
  - PLEURAL EFFUSION [None]
